FAERS Safety Report 6989850-5 (Version None)
Quarter: 2010Q3

REPORT INFORMATION
  Report Type: 
  Country: None (occurrence: None)
  Receive Date: 20100916
  Receipt Date: 20100304
  Transmission Date: 20110219
  Serious: Yes (Other)
  Sender: FDA-Public Use
  Company Number: US-PFIZER INC-2010029107

PATIENT
  Sex: Male
  Weight: 96.599 kg

DRUGS (7)
  1. LYRICA [Suspect]
     Indication: SPINAL COLUMN INJURY
     Dosage: 100 MG, 2X/DAY
     Route: 048
     Dates: start: 20081101, end: 20100226
  2. LYRICA [Suspect]
     Indication: BACK PAIN
  3. LYRICA [Suspect]
     Indication: PLASMACYTOMA
  4. IBUPROFEN [Concomitant]
  5. TRAMADOL [Concomitant]
  6. LORTAB [Concomitant]
  7. LIDODERM [Concomitant]
     Route: 062

REACTIONS (5)
  - DIARRHOEA [None]
  - INFLUENZA LIKE ILLNESS [None]
  - INSOMNIA [None]
  - NAUSEA [None]
  - WITHDRAWAL SYNDROME [None]
